FAERS Safety Report 7532766-6 (Version None)
Quarter: 2011Q2

REPORT INFORMATION
  Report Type: 
  Country: None (occurrence: None)
  Receive Date: 20110608
  Receipt Date: 20110530
  Transmission Date: 20111010
  Serious: Yes (Hospitalization)
  Sender: FDA-Public Use
  Company Number: B0689229A

PATIENT
  Age: 72 Year
  Sex: Female

DRUGS (29)
  1. SIMVASTATIN [Concomitant]
     Dosage: 40MG PER DAY
     Route: 048
  2. ESIDRIX [Concomitant]
     Indication: HYPERTENSION
     Dosage: 25MG PER DAY
     Route: 048
     Dates: start: 20100818, end: 20100819
  3. KONAKION [Concomitant]
     Route: 048
     Dates: start: 20100818, end: 20100819
  4. PARACODIN BITARTRATE TAB [Concomitant]
     Indication: COUGH
     Dosage: 15DROP PER DAY
     Route: 048
     Dates: start: 20101021, end: 20101027
  5. POTASSIUM CHLORIDE [Concomitant]
     Indication: PROPHYLAXIS
     Route: 048
     Dates: start: 20101025, end: 20101026
  6. VIANI DISKUS [Concomitant]
     Route: 048
     Dates: start: 20100501
  7. DIPYRONE TAB [Concomitant]
     Indication: PAIN
     Route: 048
     Dates: start: 20101021, end: 20101024
  8. PREDNISONE [Suspect]
     Indication: MULTIPLE MYELOMA
     Dates: start: 20100827
  9. AMIODARONE HCL [Concomitant]
     Indication: ARRHYTHMIA
     Dosage: 200MG PER DAY
     Route: 048
     Dates: start: 20040101
  10. METOPROLOL SUCCINATE [Concomitant]
     Indication: HYPERTENSION
     Dates: start: 20040101, end: 20101026
  11. HEPARIN [Concomitant]
     Dosage: 15000IU TWICE PER DAY
     Route: 058
     Dates: start: 20101022, end: 20101022
  12. ENOXAPARIN SODIUM [Concomitant]
     Indication: THROMBOSIS PROPHYLAXIS
     Route: 042
     Dates: start: 20101023, end: 20101028
  13. ZOPICLON [Concomitant]
     Indication: SLEEP DISORDER
     Dosage: 7.5MG AT NIGHT
     Route: 048
     Dates: start: 20101022, end: 20101027
  14. LISINOPRIL [Concomitant]
     Indication: HYPERTENSION
     Dosage: 10MG PER DAY
     Route: 048
  15. CITALOPRAM HYDROBROMIDE [Concomitant]
     Dosage: 20MG PER DAY
     Route: 048
     Dates: start: 20100501
  16. ESTRADIOL [Concomitant]
     Indication: HORMONE REPLACEMENT THERAPY
  17. LENDORMIN [Concomitant]
     Indication: SLEEP DISORDER
     Dosage: .25MG AT NIGHT
     Route: 048
     Dates: start: 20100817, end: 20100818
  18. PANTOPRAZOLE [Concomitant]
     Indication: PROPHYLAXIS
     Dosage: 40MG PER DAY
     Route: 048
     Dates: start: 20100827
  19. THALIDOMIDE [Suspect]
     Indication: MULTIPLE MYELOMA
     Dosage: 200MG PER DAY
     Route: 048
     Dates: start: 20100827
  20. TORSEMIDE [Concomitant]
     Indication: HYPERTENSION
     Dosage: 10MG PER DAY
     Route: 048
     Dates: start: 20100719
  21. FERRLECIT [Concomitant]
     Dosage: 2MG PER DAY
     Route: 048
     Dates: start: 20090501
  22. MELPHALAN HYDROCHLORIDE [Suspect]
     Indication: MULTIPLE MYELOMA
     Dates: start: 20100827
  23. ASPIRIN [Concomitant]
     Indication: THROMBOSIS PROPHYLAXIS
     Dosage: 100MG PER DAY
     Route: 048
     Dates: start: 20100601
  24. TAZOBAC [Concomitant]
     Indication: PNEUMONIA
     Dosage: 150MG TWICE PER DAY
     Route: 048
     Dates: start: 20101021, end: 20101026
  25. DREISAFER [Concomitant]
     Dosage: 100MG PER DAY
     Route: 048
     Dates: start: 20101023, end: 20101028
  26. METOCLOPRAMIDE [Concomitant]
     Indication: NAUSEA
     Route: 042
     Dates: start: 20101024, end: 20101024
  27. VOLTAREN [Concomitant]
     Indication: PAIN
     Dosage: 150MG TWICE PER DAY
     Route: 048
     Dates: start: 20101025
  28. DIPIDOLOR [Concomitant]
     Indication: PAIN
     Route: 042
     Dates: start: 20101021, end: 20101022
  29. ATROVENT [Concomitant]
     Route: 055
     Dates: start: 20101021, end: 20101023

REACTIONS (2)
  - VOMITING [None]
  - NAUSEA [None]
